FAERS Safety Report 8822983 (Version 1)
Quarter: 2012Q4

REPORT INFORMATION
  Report Type: 
  Country: BR (occurrence: BR)
  Receive Date: 20121003
  Receipt Date: 20121003
  Transmission Date: 20130627
  Serious: Yes (Other)
  Sender: FDA-Public Use
  Company Number: BR-BRISTOL-MYERS SQUIBB COMPANY-17006214

PATIENT
  Age: 62 Year
  Sex: Male

DRUGS (10)
  1. METFORMIN HCL [Suspect]
     Route: 048
  2. GLIMEPIRIDE [Suspect]
     Dosage: therapy dates: Apr07,Mar12
     Dates: start: 200704
  3. ACETYLSALICYLIC ACID [Concomitant]
     Dates: start: 200704
  4. SIMVASTATIN [Concomitant]
     Dates: start: 200704
  5. AMIODARONE [Concomitant]
     Dates: start: 200704
  6. ANCORON [Concomitant]
     Dates: start: 200807
  7. ROSUVASTATIN [Concomitant]
     Dates: start: 200807
  8. RAMIPRIL [Concomitant]
     Dates: start: 201203
  9. METOPROLOL SUCCINATE [Concomitant]
     Dates: start: 201203
  10. VILDAGLIPTIN [Concomitant]
     Dates: start: 201203

REACTIONS (2)
  - Cardiovascular disorder [Unknown]
  - Asthenia [Recovered/Resolved]
